FAERS Safety Report 18160256 (Version 2)
Quarter: 2020Q3

REPORT INFORMATION
  Report Type: Other
  Country: US (occurrence: US)
  Receive Date: 20200818
  Receipt Date: 20200907
  Transmission Date: 20201103
  Serious: Yes (Hospitalization, Other)
  Sender: FDA-Public Use
  Company Number: US-ROCHE-2658262

PATIENT
  Age: 72 Year
  Sex: Female
  Weight: 99.88 kg

DRUGS (14)
  1. OCREVUS [Suspect]
     Active Substance: OCRELIZUMAB
     Indication: MULTIPLE SCLEROSIS
     Dosage: HALF AMOUNT DOSES
     Route: 042
     Dates: start: 201911
  2. POTASSIUM [Concomitant]
     Active Substance: POTASSIUM
     Dosage: 3 TO 4 TIMES WEEKLY
     Route: 048
  3. ASPIRIN. [Concomitant]
     Active Substance: ASPIRIN
     Route: 048
  4. VITAMIN D3 [Concomitant]
     Active Substance: CHOLECALCIFEROL
     Indication: MULTIPLE SCLEROSIS
     Route: 048
  5. BOTOX [Concomitant]
     Active Substance: ONABOTULINUMTOXINA
     Indication: URINARY INCONTINENCE
     Dosage: DOUBLE DOSE EVERY 6 MONTHS
     Route: 065
  6. LISINOPRIL. [Concomitant]
     Active Substance: LISINOPRIL
     Indication: HYPERTENSION
     Route: 048
  7. OCREVUS [Suspect]
     Active Substance: OCRELIZUMAB
     Indication: PRIMARY PROGRESSIVE MULTIPLE SCLEROSIS
     Route: 042
     Dates: start: 20191106
  8. ESTRADIOL. [Concomitant]
     Active Substance: ESTRADIOL
     Indication: FUNGAL INFECTION
  9. KETOCONAZOLE. [Concomitant]
     Active Substance: KETOCONAZOLE
     Route: 061
  10. GLUCOSAMINE [Concomitant]
     Active Substance: GLUCOSAMINE
     Dosage: 2 TABLETS ONCE A DAY
     Route: 048
  11. OCREVUS [Suspect]
     Active Substance: OCRELIZUMAB
     Route: 042
  12. ESTRADIOL. [Concomitant]
     Active Substance: ESTRADIOL
     Indication: URINARY TRACT INFECTION
     Route: 067
  13. FISH OIL [Concomitant]
     Active Substance: FISH OIL
     Route: 048
  14. MAGNESIUM [Concomitant]
     Active Substance: MAGNESIUM
     Route: 048

REACTIONS (6)
  - Gait disturbance [Not Recovered/Not Resolved]
  - Multiple sclerosis relapse [Not Recovered/Not Resolved]
  - Cellulitis [Recovered/Resolved]
  - Dysstasia [Not Recovered/Not Resolved]
  - Fall [Unknown]
  - Urinary tract infection [Recovered/Resolved]

NARRATIVE: CASE EVENT DATE: 20200806
